FAERS Safety Report 23190862 (Version 2)
Quarter: 2024Q2

REPORT INFORMATION
  Report Type: Report from Study
  Country: CA (occurrence: CA)
  Receive Date: 20231116
  Receipt Date: 20240614
  Transmission Date: 20240716
  Serious: Yes (Other)
  Sender: FDA-Public Use
  Company Number: CA-TAKEDA-2022TUS069525

PATIENT
  Sex: Female

DRUGS (7)
  1. VEDOLIZUMAB [Suspect]
     Active Substance: VEDOLIZUMAB
     Indication: Crohn^s disease
     Dosage: 300 MILLIGRAM
     Route: 042
     Dates: start: 20220610
  2. VEDOLIZUMAB [Suspect]
     Active Substance: VEDOLIZUMAB
     Indication: Crohn^s disease
     Dosage: 108 MILLIGRAM, Q2WEEKS
     Route: 058
     Dates: start: 20220913
  3. MERCAPTOPURINE [Concomitant]
     Active Substance: MERCAPTOPURINE
     Dosage: UNK
  4. PANTOPRAZOLE [Concomitant]
     Active Substance: PANTOPRAZOLE
     Dosage: 40 MILLIGRAM
  5. CITALOPRAM [Concomitant]
     Active Substance: CITALOPRAM\CITALOPRAM HYDROBROMIDE
     Dosage: 30 MILLIGRAM
     Route: 048
  6. VITAMIN B12 [Concomitant]
     Active Substance: CYANOCOBALAMIN
     Dosage: UNK
     Route: 048
  7. VITAMIN D [Concomitant]
     Active Substance: VITAMIN D NOS
     Dosage: UNK
     Route: 048

REACTIONS (23)
  - Cholelithiasis [Unknown]
  - Dysphagia [Unknown]
  - Hypoaesthesia [Unknown]
  - Malaise [Unknown]
  - Asthenia [Unknown]
  - Diarrhoea [Unknown]
  - Eye pain [Unknown]
  - Lacrimation increased [Unknown]
  - Irritable bowel syndrome [Unknown]
  - Dysgeusia [Unknown]
  - Abdominal pain upper [Unknown]
  - Paranasal sinus discomfort [Unknown]
  - Abdominal pain [Unknown]
  - Dizziness [Unknown]
  - Discomfort [Unknown]
  - Vomiting [Unknown]
  - Anal fissure [Unknown]
  - Erythema [Unknown]
  - Back pain [Unknown]
  - Arthralgia [Unknown]
  - Headache [Unknown]
  - Fatigue [Unknown]
  - Nausea [Unknown]
